FAERS Safety Report 9155912 (Version 1)
Quarter: 2013Q1

REPORT INFORMATION
  Report Type: Spontaneous
  Country: US (occurrence: US)
  Receive Date: 20130311
  Receipt Date: 20130311
  Transmission Date: 20140127
  Serious: No
  Sender: FDA-Public Use
  Company Number: US-BAYER-2013-029974

PATIENT
  Age: 30 Year
  Sex: Female
  Weight: 67 kg

DRUGS (3)
  1. ALEVE CAPLET/TABLET,MIDOL EXTENDED RELIEF CAPLET [Suspect]
     Dosage: 4 DF, UNK
     Route: 048
     Dates: start: 20130306
  2. IMITREX [Concomitant]
     Indication: PROCEDURAL PAIN
  3. IBUPROFENE [Concomitant]
     Indication: PROCEDURAL PAIN

REACTIONS (1)
  - Overdose [None]
